FAERS Safety Report 7494608-7 (Version None)
Quarter: 2011Q2

REPORT INFORMATION
  Report Type: 
  Country: None (occurrence: None)
  Receive Date: 20110520
  Receipt Date: 20110518
  Transmission Date: 20111010
  Serious: Yes (Other)
  Sender: FDA-Public Use
  Company Number: PHHY2010BR83664

PATIENT
  Age: 49 Year
  Sex: Female

DRUGS (7)
  1. FORMOTEROL FUMARATE [Suspect]
     Indication: ASTHMA
     Dosage: 1 INHALATION WITH EACH ACTIVE PRINCIPLE, TWICE A DAY
  2. VIBRAMICINA [Concomitant]
     Indication: ASTHMA
     Dosage: UNK
  3. ALPRAZOLAM [Concomitant]
     Dosage: 1 TABLET OF  0.5 MG AT NIGHT
  4. FLUOXETINE HCL [Concomitant]
     Dosage: 20 MG IN THE MORNING
  5. COMBIVENT [Concomitant]
     Indication: ASTHMA
  6. METICORTEN [Concomitant]
     Dosage: 20 MG
  7. BUDESONIDE [Suspect]
     Indication: ASTHMA
     Dosage: 1 INHALATION, TWICE A DAY

REACTIONS (5)
  - DEPRESSION [None]
  - ANXIETY [None]
  - ASTHMA [None]
  - INSOMNIA [None]
  - SYNCOPE [None]
